FAERS Safety Report 18024796 (Version 1)
Quarter: 2020Q3

REPORT INFORMATION
  Report Type: Spontaneous
  Country: US (occurrence: US)
  Receive Date: 20200714
  Receipt Date: 20200714
  Transmission Date: 20201103
  Serious: Yes (Hospitalization)
  Sender: FDA-Public Use
  Company Number: None

PATIENT
  Age: 63 Year
  Sex: Male

DRUGS (2)
  1. DIVALPROEX (DIVALPROEX NA 500MG TAB, SA) [Suspect]
     Active Substance: DIVALPROEX SODIUM
     Indication: POST-TRAUMATIC STRESS DISORDER
     Route: 048
     Dates: start: 20191009, end: 20191118
  2. DIVALPROEX (DIVALPROEX NA 500MG TAB, SA) [Suspect]
     Active Substance: DIVALPROEX SODIUM
     Indication: DEPRESSION
     Route: 048
     Dates: start: 20191009, end: 20191118

REACTIONS (2)
  - Hepatic enzyme increased [None]
  - Pancreatitis [None]

NARRATIVE: CASE EVENT DATE: 20191113
